FAERS Safety Report 4791672-0 (Version None)
Quarter: 2005Q4

REPORT INFORMATION
  Report Type: 
  Country: None (occurrence: None)
  Receive Date: 20051005
  Receipt Date: 20050919
  Transmission Date: 20060501
  Serious: Yes (Death, Hospitalization)
  Sender: FDA-Public Use
  Company Number: FR_050907165

PATIENT
  Age: 70 Year
  Sex: Male

DRUGS (4)
  1. ALIMTA [Suspect]
     Indication: NON-SMALL CELL LUNG CANCER METASTATIC
     Dosage: 500 MG/M2  1 OTHER
     Route: 050
     Dates: start: 20050909
  2. FOLIC ACID [Concomitant]
  3. VITAMIN B-12 [Concomitant]
  4. DEXAMETHASONE [Concomitant]

REACTIONS (6)
  - BONE MARROW FAILURE [None]
  - CATHETER SITE INFECTION [None]
  - PANCYTOPENIA [None]
  - PSEUDOMONAS INFECTION [None]
  - SEPTIC SHOCK [None]
  - STAPHYLOCOCCAL INFECTION [None]
